FAERS Safety Report 11558631 (Version 1)
Quarter: 2015Q3

REPORT INFORMATION
  Report Type: Other
  Country: IN (occurrence: IN)
  Receive Date: 20150928
  Receipt Date: 20150928
  Transmission Date: 20151125
  Serious: Yes (Life-Threatening, Hospitalization)
  Sender: FDA-Public Use
  Company Number: IN-ORCHID HEALTHCARE-1042337

PATIENT
  Age: 72 Year
  Sex: Male
  Weight: 68 kg

DRUGS (5)
  1. METOPROLOL SUCCINATE. [Suspect]
     Active Substance: METOPROLOL SUCCINATE
     Route: 065
  2. AMLODIPINE BESYLATE. [Suspect]
     Active Substance: AMLODIPINE BESYLATE
     Indication: HYPERTENSION
     Route: 065
  3. PROPOFOL. [Suspect]
     Active Substance: PROPOFOL
     Route: 042
  4. NITROUS OXIDE. [Suspect]
     Active Substance: NITROUS OXIDE
     Route: 065
  5. ISOFLURANE. [Suspect]
     Active Substance: ISOFLURANE
     Route: 065

REACTIONS (10)
  - Hypotension [Recovered/Resolved]
  - Urine output decreased [Recovered/Resolved]
  - Hypothermia [Recovered/Resolved]
  - Drug interaction [Recovered/Resolved]
  - Hypoperfusion [Recovered/Resolved]
  - Vena cava injury [Recovered/Resolved]
  - Lactic acidosis [Recovered/Resolved]
  - Toxicity to various agents [Recovered/Resolved]
  - Bradycardia [Recovered/Resolved]
  - Metabolic acidosis [Recovered/Resolved]
